FAERS Safety Report 8002945-2 (Version None)
Quarter: 2011Q4

REPORT INFORMATION
  Report Type: 
  Country: None (occurrence: None)
  Receive Date: 20111222
  Receipt Date: 20110413
  Transmission Date: 20120403
  Serious: No
  Sender: FDA-Public Use
  Company Number: US-GLAXOSMITHKLINE-A0922863A

PATIENT
  Age: 75 Year
  Sex: Male

DRUGS (4)
  1. AVODART [Suspect]
     Indication: PROSTATIC SPECIFIC ANTIGEN INCREASED
     Dosage: 1CAP PER DAY
     Route: 048
     Dates: start: 20110101
  2. CARBIDOPA AND LEVODOPA [Concomitant]
  3. CASODEX [Concomitant]
  4. SERTRALINE HYDROCHLORIDE [Concomitant]

REACTIONS (3)
  - FLUSHING [None]
  - DRY MOUTH [None]
  - FEELING HOT [None]
